FAERS Safety Report 25712989 (Version 2)
Quarter: 2025Q3

REPORT INFORMATION
  Report Type: Spontaneous
  Country: US (occurrence: US)
  Receive Date: 20250821
  Receipt Date: 20250917
  Transmission Date: 20251020
  Serious: No
  Sender: SANOFI AVENTIS
  Company Number: US-SANOFI-02623289

PATIENT
  Age: 65 Year
  Sex: Male

DRUGS (2)
  1. LANTUS SOLOSTAR [Suspect]
     Active Substance: INSULIN GLARGINE
     Indication: Diabetes mellitus
     Dosage: 10 U, HS
     Dates: start: 20250811
  2. INSULIN LISPRO [Concomitant]
     Active Substance: INSULIN LISPRO

REACTIONS (3)
  - Hyperglycaemia [Unknown]
  - Wrong technique in product usage process [Unknown]
  - Device defective [Unknown]

NARRATIVE: CASE EVENT DATE: 20250814
